FAERS Safety Report 7920398-7 (Version None)
Quarter: 2011Q4

REPORT INFORMATION
  Report Type: 
  Country: None (occurrence: None)
  Receive Date: 20111117
  Receipt Date: 20111114
  Transmission Date: 20120403
  Serious: Yes (Death, Life-Threatening, Other)
  Sender: FDA-Public Use
  Company Number: US-ELI_LILLY_AND_COMPANY-US201111004575

PATIENT
  Age: 65 Year
  Sex: Male

DRUGS (1)
  1. EFFIENT [Suspect]
     Indication: STENT PLACEMENT
     Dosage: 60 MG, LOADING DOSE

REACTIONS (5)
  - HAEMORRHAGE [None]
  - VENTRICULAR ASSIST DEVICE INSERTION [None]
  - CARDIOGENIC SHOCK [None]
  - VASCULAR GRAFT [None]
  - DEATH [None]
